FAERS Safety Report 10654217 (Version 1)
Quarter: 2014Q4

REPORT INFORMATION
  Report Type: Spontaneous
  Country: US (occurrence: None)
  Receive Date: 20141215
  Receipt Date: 20141215
  Transmission Date: 20150529
  Serious: Yes (Other)
  Sender: FDA-Public Use
  Company Number: None

PATIENT
  Age: 10 Year
  Sex: Male
  Weight: 37.2 kg

DRUGS (1)
  1. INTUNIV [Suspect]
     Active Substance: GUANFACINE HYDROCHLORIDE
     Indication: ATTENTION DEFICIT/HYPERACTIVITY DISORDER
     Dosage: 1/DAY TAKEN BY MOUTH
     Route: 048

REACTIONS (4)
  - Enuresis [None]
  - Incontinence [None]
  - Constipation [None]
  - Educational problem [None]

NARRATIVE: CASE EVENT DATE: 20140510
